FAERS Safety Report 10462758 (Version 1)
Quarter: 2014Q3

REPORT INFORMATION
  Report Type: Spontaneous
  Country: NL (occurrence: NL)
  Receive Date: 20140918
  Receipt Date: 20140918
  Transmission Date: 20150326
  Serious: Yes (Other)
  Sender: FDA-Public Use
  Company Number: NL-BAXTER-2014BAX054993

PATIENT
  Sex: Female
  Weight: 70 kg

DRUGS (1)
  1. ARTISS [Suspect]
     Active Substance: FIBRINOGEN HUMAN\THROMBIN HUMAN
     Indication: ABDOMINAL OPERATION
     Dosage: 2 X 4 ML
     Route: 065
     Dates: start: 20140504, end: 20140504

REACTIONS (2)
  - Pulmonary embolism [Unknown]
  - Drug administration error [Recovered/Resolved]
